FAERS Safety Report 22216087 (Version 1)
Quarter: 2023Q2

REPORT INFORMATION
  Report Type: Spontaneous
  Country: US (occurrence: US)
  Receive Date: 20230417
  Receipt Date: 20230417
  Transmission Date: 20230722
  Serious: No
  Sender: FDA-Public Use
  Company Number: US-GSKCCFUS-Case-01674942_AE-94485

PATIENT
  Age: 79 Year
  Sex: Female

DRUGS (2)
  1. NUCALA [Suspect]
     Active Substance: MEPOLIZUMAB
     Indication: Eosinophilic granulomatosis with polyangiitis
     Dosage: UNK, Z (EVRY 28 DAYS) 3(100MG) 1 IN THE ARM AND 2 IN THE STOMACH
     Dates: start: 20230407
  2. NUCALA [Suspect]
     Active Substance: MEPOLIZUMAB
     Indication: Pulmonary vasculitis

REACTIONS (5)
  - Contusion [Not Recovered/Not Resolved]
  - Injection site bruising [Not Recovered/Not Resolved]
  - Wrong technique in device usage process [Unknown]
  - Accidental exposure to product [Unknown]
  - Underdose [Unknown]

NARRATIVE: CASE EVENT DATE: 20230407
